FAERS Safety Report 5611648-0 (Version None)
Quarter: 2008Q1

REPORT INFORMATION
  Report Type: 
  Country: None (occurrence: None)
  Receive Date: 20080201
  Receipt Date: 20080128
  Transmission Date: 20080703
  Serious: Yes (Other)
  Sender: FDA-Public Use
  Company Number: PT-PFIZER INC-2008008593

PATIENT
  Sex: Female

DRUGS (3)
  1. CHANTIX [Suspect]
     Indication: SMOKING CESSATION THERAPY
     Route: 048
  2. DIPLEXIL [Concomitant]
     Route: 048
  3. TOPAMAX [Concomitant]
     Route: 048

REACTIONS (2)
  - BIPOLAR DISORDER [None]
  - DEPRESSION [None]
